FAERS Safety Report 7735346-2 (Version None)
Quarter: 2011Q3

REPORT INFORMATION
  Report Type: 
  Country: None (occurrence: None)
  Receive Date: 20110907
  Receipt Date: 20110905
  Transmission Date: 20111222
  Serious: Yes (Death, Other)
  Sender: FDA-Public Use
  Company Number: PHHY2011IN78752

PATIENT
  Sex: Female

DRUGS (3)
  1. DEXAMETHASONE [Concomitant]
     Indication: FAMILIAL HAEMOPHAGOCYTIC LYMPHOHISTIOCYTOSIS
     Dosage: UNK UKN, UNK
  2. ETOPOSIDE [Concomitant]
     Indication: FAMILIAL HAEMOPHAGOCYTIC LYMPHOHISTIOCYTOSIS
     Dosage: UNK UKN, UNK
  3. CYCLOSPORINE [Suspect]
     Indication: LYMPHOHISTIOCYTOSIS
     Dosage: UNK UKN, UNK

REACTIONS (4)
  - MULTI-ORGAN FAILURE [None]
  - LYMPHOHISTIOCYTOSIS [None]
  - GASTROENTERITIS CRYPTOSPORIDIAL [None]
  - HISTIOCYTOSIS HAEMATOPHAGIC [None]
